FAERS Safety Report 5828762-7 (Version None)
Quarter: 2008Q3

REPORT INFORMATION
  Report Type: 
  Country: None (occurrence: None)
  Receive Date: 20080729
  Receipt Date: 20080718
  Transmission Date: 20090109
  Serious: Yes (Other)
  Sender: FDA-Public Use
  Company Number: URSO-2008-070

PATIENT
  Age: 70 Year
  Sex: Male

DRUGS (3)
  1. URSO 250 [Suspect]
     Indication: CHRONIC HEPATITIS
     Dosage: ORAL
     Route: 048
  2. ANTIBIOTIC [Concomitant]
  3. MEDICAL OXYGEN [Concomitant]

REACTIONS (1)
  - PNEUMONIA ASPIRATION [None]
